FAERS Safety Report 9096589 (Version 4)
Quarter: 2013Q2

REPORT INFORMATION
  Report Type: Spontaneous
  Country: BR (occurrence: BR)
  Receive Date: 20130211
  Receipt Date: 20130603
  Transmission Date: 20140414
  Serious: Yes (Other)
  Sender: FDA-Public Use
  Company Number: BR-AMGEN-BRASP2013008819

PATIENT
  Age: 71 Year
  Sex: Female
  Weight: 54 kg

DRUGS (6)
  1. ENBREL [Suspect]
     Indication: RHEUMATOID ARTHRITIS
     Dosage: UNK
     Dates: start: 201112
  2. ENBREL [Suspect]
     Dosage: 50 MG, QWK
     Route: 058
     Dates: start: 2012
  3. HYDROCHLOROTHIAZIDE [Concomitant]
     Indication: HYPERTENSION
     Dosage: STRENGTHS 25 MG, UNSPECIFIED DOSE, ONCE A DAY
  4. ATENOLOL [Concomitant]
     Indication: HYPERTENSION
     Dosage: STRENGTHS 25 MG, UNSPECIFIED DOSE, ONCE A DAY
  5. AMLODIPINE [Concomitant]
     Indication: HYPERTENSION
     Dosage: STRENGTHS 5 MG, UNSPECIFIED DOSE, ONCE A DAY
  6. SINVASTAMED [Concomitant]
     Indication: BLOOD CHOLESTEROL INCREASED
     Dosage: 20 MG, 1X/DAY

REACTIONS (7)
  - Scar [Unknown]
  - Limb injury [Recovered/Resolved with Sequelae]
  - Wound haemorrhage [Recovered/Resolved]
  - Diabetes mellitus [Unknown]
  - Spinal pain [Unknown]
  - Injection site pain [Recovered/Resolved]
  - Injection site haemorrhage [Unknown]
